FAERS Safety Report 5343176-4 (Version None)
Quarter: 2007Q2

REPORT INFORMATION
  Report Type: 
  Country: None (occurrence: None)
  Receive Date: 20070416
  Receipt Date: 20070226
  Transmission Date: 20071010
  Serious: No
  Sender: FDA-Public Use
  Company Number: 2007SP000663

PATIENT
  Age: 64 Year
  Sex: Female
  Weight: 65.7716 kg

DRUGS (8)
  1. LUNESTA [Suspect]
     Indication: INSOMNIA
     Dosage: SEE IMAGE
     Route: 048
     Dates: start: 20050101, end: 20061101
  2. LUNESTA [Suspect]
     Indication: INSOMNIA
     Dosage: SEE IMAGE
     Route: 048
     Dates: start: 20061101, end: 20070225
  3. SYNTHROID [Concomitant]
  4. EVISTA [Concomitant]
  5. PAXIL [Concomitant]
  6. ATORVASTATIN CALCIUM [Concomitant]
  7. ZETIA [Concomitant]
  8. DESLORATADINE [Concomitant]

REACTIONS (1)
  - DYSGEUSIA [None]
